FAERS Safety Report 8337320-4 (Version None)
Quarter: 2012Q2

REPORT INFORMATION
  Report Type: 
  Country: None (occurrence: None)
  Receive Date: 20120504
  Receipt Date: 20120502
  Transmission Date: 20120825
  Serious: Yes (Life-Threatening, Hospitalization)
  Sender: FDA-Public Use
  Company Number: LB-B.I. PHARMACEUTICALS,INC./RIDGEFIELD-2012-CS-00553AE

PATIENT
  Age: 78 Year
  Sex: Female

DRUGS (4)
  1. PRADAXA [Suspect]
     Indication: CEREBROVASCULAR ACCIDENT PROPHYLAXIS
     Dosage: 220 MG
     Route: 048
     Dates: start: 20120201, end: 20120301
  2. OMEPRAZOLE [Concomitant]
  3. DILTIAZEM [Concomitant]
  4. LASIX [Concomitant]

REACTIONS (1)
  - ASTHMA [None]
